FAERS Safety Report 10453956 (Version 1)
Quarter: 2014Q3

REPORT INFORMATION
  Report Type: Spontaneous
  Country: US (occurrence: US)
  Receive Date: 20140915
  Receipt Date: 20140915
  Transmission Date: 20150326
  Serious: No
  Sender: FDA-Public Use
  Company Number: US-BRISTOL-MYERS SQUIBB COMPANY-20702700

PATIENT

DRUGS (2)
  1. ELIQUIS [Suspect]
     Active Substance: APIXABAN
  2. VORICONAZOLE. [Interacting]
     Active Substance: VORICONAZOLE

REACTIONS (2)
  - Drug interaction [Unknown]
  - Fungal infection [Unknown]
